FAERS Safety Report 4567734-X (Version None)
Quarter: 2005Q1

REPORT INFORMATION
  Report Type: 
  Country: None (occurrence: None)
  Receive Date: 20050202
  Receipt Date: 20041029
  Transmission Date: 20050727
  Serious: Yes (Other)
  Sender: FDA-Public Use
  Company Number: PHBS2004JP14620

PATIENT
  Age: 69 Year
  Sex: Female
  Weight: 65 kg

DRUGS (3)
  1. VOLTAREN [Suspect]
     Indication: SCIATICA
     Dosage: 25 MG/DAY
     Route: 048
     Dates: end: 20041027
  2. PONTAL [Suspect]
     Indication: SCIATICA
     Dosage: 250 MG/DAY
     Route: 048
     Dates: end: 20041027
  3. SOLANTAL [Suspect]
     Indication: SCIATICA
     Dosage: 100 MG/DAY
     Route: 048
     Dates: end: 20041027

REACTIONS (8)
  - ANAEMIA [None]
  - CONTUSION [None]
  - HAEMOGLOBIN DECREASED [None]
  - MYELODYSPLASTIC SYNDROME [None]
  - PETECHIAE [None]
  - PLATELET COUNT DECREASED [None]
  - SURGERY [None]
  - THROMBOCYTOPENIA [None]
